FAERS Safety Report 6047994-9 (Version None)
Quarter: 2009Q1

REPORT INFORMATION
  Report Type: 
  Country: None (occurrence: None)
  Receive Date: 20090123
  Receipt Date: 20090120
  Transmission Date: 20090719
  Serious: Yes (Death)
  Sender: FDA-Public Use
  Company Number: PHHY2009BR02195

PATIENT
  Age: 75 Year
  Sex: Female

DRUGS (2)
  1. FORASEQ [Suspect]
     Indication: ASTHMA
     Dosage: MORE THAN ONCE DAILY
  2. ANTIHYPERTENSIVES [Concomitant]
     Indication: HYPERTENSION

REACTIONS (2)
  - ASTHMA [None]
  - CARDIAC FAILURE [None]
